FAERS Safety Report 11697086 (Version 2)
Quarter: 2016Q2

REPORT INFORMATION
  Report Type: Spontaneous
  Country: FR (occurrence: FR)
  Receive Date: 20151104
  Receipt Date: 20160509
  Transmission Date: 20160815
  Serious: Yes (Death, Hospitalization, Other)
  Sender: FDA-Public Use
  Company Number: FR-TEVA-605588ISR

PATIENT
  Age: 65 Year
  Sex: Female

DRUGS (1)
  1. METHOTREXATE [Suspect]
     Active Substance: METHOTREXATE
     Indication: RHEUMATOID ARTHRITIS
     Dosage: 15MG/WEEK
     Route: 065

REACTIONS (6)
  - Systemic inflammatory response syndrome [Unknown]
  - Circulatory collapse [Unknown]
  - Interstitial lung disease [Unknown]
  - Hyperlactacidaemia [Unknown]
  - Histoplasmosis disseminated [Fatal]
  - Multiple organ dysfunction syndrome [Fatal]
